FAERS Safety Report 7449423-7 (Version None)
Quarter: 2011Q2

REPORT INFORMATION
  Report Type: 
  Country: None (occurrence: None)
  Receive Date: 20110502
  Receipt Date: 20110421
  Transmission Date: 20111010
  Serious: No
  Sender: FDA-Public Use
  Company Number: US-BIOGENIDEC-2011BI011037

PATIENT
  Sex: Female

DRUGS (3)
  1. AVONEX [Suspect]
     Indication: MULTIPLE SCLEROSIS
     Route: 030
     Dates: start: 20031101
  2. AVONEX [Suspect]
     Route: 030
     Dates: start: 20030801, end: 20031101
  3. AVONEX [Suspect]
     Route: 030
     Dates: start: 20000113, end: 20030801

REACTIONS (5)
  - FALL [None]
  - ADVERSE DRUG REACTION [None]
  - DECREASED INTEREST [None]
  - GENERAL SYMPTOM [None]
  - BALANCE DISORDER [None]
